FAERS Safety Report 14829544 (Version 2)
Quarter: 2018Q3

REPORT INFORMATION
  Report Type: Spontaneous
  Country: US (occurrence: US)
  Receive Date: 20180430
  Receipt Date: 20180919
  Transmission Date: 20181010
  Serious: Yes (Other)
  Sender: FDA-Public Use
  Company Number: US-TAKEDA-2018TUS014266

PATIENT

DRUGS (60)
  1. PREVACID [Suspect]
     Active Substance: LANSOPRAZOLE
     Dosage: 30 MG, QD
     Route: 065
     Dates: start: 2012
  2. POTASSIUM [Concomitant]
     Active Substance: POTASSIUM
     Indication: HYPOKALAEMIA
     Dosage: UNK
     Route: 065
     Dates: start: 2004
  3. POTASSIUM [Concomitant]
     Active Substance: POTASSIUM
     Dosage: UNK
     Route: 065
     Dates: start: 20100325
  4. LINZESS [Concomitant]
     Active Substance: LINACLOTIDE
     Indication: IRRITABLE BOWEL SYNDROME
     Dosage: UNK
     Route: 065
     Dates: start: 2015
  5. FINACEA [Concomitant]
     Active Substance: AZELAIC ACID
     Indication: ACNE
     Dates: start: 2008
  6. ENULOSE [Concomitant]
     Active Substance: LACTULOSE
     Indication: IRRITABLE BOWEL SYNDROME
     Dosage: UNK
     Dates: start: 2006
  7. PREVACID [Suspect]
     Active Substance: LANSOPRAZOLE
     Dosage: 30 MG, QD
     Route: 065
     Dates: start: 2004, end: 2008
  8. OMEPRAZOLE. [Suspect]
     Active Substance: OMEPRAZOLE
     Indication: PRODUCT USED FOR UNKNOWN INDICATION
     Dosage: UNK
     Route: 048
  9. NEXIUM 24HR [Suspect]
     Active Substance: ESOMEPRAZOLE MAGNESIUM
     Indication: GASTROOESOPHAGEAL REFLUX DISEASE
     Dosage: 40 MG, QD
     Route: 048
     Dates: end: 2013
  10. POTASSIUM [Concomitant]
     Active Substance: POTASSIUM
     Indication: ANTIFUNGAL TREATMENT
     Dosage: UNK
     Route: 065
     Dates: start: 20140528
  11. HCTZ [Concomitant]
     Active Substance: HYDROCHLOROTHIAZIDE
     Indication: HYPERTENSION
     Route: 065
     Dates: start: 2014
  12. VERDESO [Concomitant]
     Active Substance: DESONIDE
     Indication: STEROID ACTIVITY
     Dates: start: 2011
  13. ALLEGRA [Concomitant]
     Active Substance: FEXOFENADINE HYDROCHLORIDE
     Indication: ANTIALLERGIC THERAPY
     Dates: start: 2007
  14. PEPCID AC [Concomitant]
     Active Substance: FAMOTIDINE
  15. PREVACID [Suspect]
     Active Substance: LANSOPRAZOLE
     Dosage: 30 MG, QD
     Route: 048
  16. PRILOSEC [Suspect]
     Active Substance: OMEPRAZOLE MAGNESIUM
     Indication: PRODUCT USED FOR UNKNOWN INDICATION
     Dosage: UNK
     Route: 048
     Dates: start: 2004, end: 2016
  17. POTASSIUM [Concomitant]
     Active Substance: POTASSIUM
     Indication: SLEEP DISORDER
     Dosage: UNK
     Route: 048
     Dates: start: 20160211
  18. POTASSIUM [Concomitant]
     Active Substance: POTASSIUM
     Dosage: UNK
     Route: 065
     Dates: start: 2008
  19. AMFETAMINE SULFATE W/DEXAMFETAMINE [Concomitant]
     Active Substance: AMPHETAMINE SULFATE\DEXTROAMPHETAMINE
     Indication: ANXIETY
     Dosage: UNK
     Route: 065
     Dates: start: 2014
  20. AMFETAMINE SULFATE W/DEXAMFETAMINE [Concomitant]
     Active Substance: AMPHETAMINE SULFATE\DEXTROAMPHETAMINE
     Indication: ACNE
     Dosage: UNK
     Route: 065
     Dates: start: 20100729
  21. VITAMIN D2 [Concomitant]
     Active Substance: ERGOCALCIFEROL
     Dates: start: 2015
  22. PREVACID [Suspect]
     Active Substance: LANSOPRAZOLE
     Indication: GASTROOESOPHAGEAL REFLUX DISEASE
     Dosage: UNK
     Route: 065
     Dates: start: 2004, end: 2016
  23. NEXIUM [Suspect]
     Active Substance: ESOMEPRAZOLE MAGNESIUM
     Indication: PRODUCT USED FOR UNKNOWN INDICATION
     Dosage: UNK
     Route: 048
  24. POTASSIUM [Concomitant]
     Active Substance: POTASSIUM
     Indication: ANTIALLERGIC THERAPY
     Route: 065
     Dates: start: 2010
  25. AMFETAMINE SULFATE W/DEXAMFETAMINE [Concomitant]
     Active Substance: AMPHETAMINE SULFATE\DEXTROAMPHETAMINE
     Indication: ATTENTION DEFICIT/HYPERACTIVITY DISORDER
     Dosage: UNK
     Route: 065
     Dates: start: 2012
  26. DEXTROAMPHATINE [Concomitant]
     Indication: ATTENTION DEFICIT/HYPERACTIVITY DISORDER
     Route: 065
     Dates: start: 2014
  27. DICYCLOMINE                        /00068601/ [Concomitant]
     Active Substance: DICYCLOMINE HYDROCHLORIDE
     Indication: IRRITABLE BOWEL SYNDROME
     Dates: start: 2014, end: 2016
  28. TAGAMET HB [Concomitant]
     Active Substance: CIMETIDINE
  29. BENTYL [Concomitant]
     Active Substance: DICYCLOMINE HYDROCHLORIDE
     Route: 065
  30. POTASSIUM [Concomitant]
     Active Substance: POTASSIUM
     Indication: PAIN
     Dosage: 150 MG, QD
     Route: 048
     Dates: start: 2016
  31. POTASSIUM [Concomitant]
     Active Substance: POTASSIUM
     Dosage: UNK
     Route: 065
     Dates: start: 2011
  32. POTASSIUM [Concomitant]
     Active Substance: POTASSIUM
     Dosage: 200 MG, QD
     Route: 065
  33. AMFETAMINE SULFATE W/DEXAMFETAMINE [Concomitant]
     Active Substance: AMPHETAMINE SULFATE\DEXTROAMPHETAMINE
     Indication: PAIN
     Dosage: 37.5 MG, QD
     Route: 048
     Dates: start: 2016
  34. VYVANSE [Concomitant]
     Active Substance: LISDEXAMFETAMINE DIMESYLATE
     Indication: ATTENTION DEFICIT/HYPERACTIVITY DISORDER
     Route: 065
     Dates: start: 2017
  35. KETOTIFEN [Concomitant]
     Active Substance: KETOTIFEN
     Indication: PAIN
     Dates: start: 2016
  36. KETOTIFEN [Concomitant]
     Active Substance: KETOTIFEN
     Indication: COUGH
     Dates: start: 2013
  37. KETOTIFEN [Concomitant]
     Active Substance: KETOTIFEN
     Indication: ANTIFUNGAL TREATMENT
     Dates: start: 2010
  38. KETOTIFEN [Concomitant]
     Active Substance: KETOTIFEN
     Indication: ACNE
     Dates: start: 2009
  39. KETOTIFEN [Concomitant]
     Active Substance: KETOTIFEN
     Dates: start: 2007
  40. PATADAY [Concomitant]
     Active Substance: OLOPATADINE HYDROCHLORIDE
     Indication: ANTIALLERGIC THERAPY
     Dates: start: 2011
  41. POTASSIUM [Concomitant]
     Active Substance: POTASSIUM
     Dosage: UNK
     Route: 065
     Dates: start: 20060420
  42. POTASSIUM [Concomitant]
     Active Substance: POTASSIUM
     Dosage: 600 MG, QD
     Route: 048
     Dates: start: 20120207
  43. KLOR?CON [Concomitant]
     Active Substance: POTASSIUM CHLORIDE
     Indication: HYPOKALAEMIA
     Route: 065
     Dates: start: 2017
  44. RETIN?A [Concomitant]
     Active Substance: TRETINOIN
     Indication: ACNE
     Dates: start: 2008
  45. ASPIRIN (E.C.) [Concomitant]
     Active Substance: ASPIRIN
     Indication: PROPHYLAXIS
  46. ZANTAC [Concomitant]
     Active Substance: RANITIDINE HYDROCHLORIDE
  47. NEXIUM 24HR [Suspect]
     Active Substance: ESOMEPRAZOLE MAGNESIUM
     Dosage: 20 MG, QD
     Route: 048
     Dates: end: 2014
  48. POTASSIUM [Concomitant]
     Active Substance: POTASSIUM
     Indication: MYALGIA
     Dosage: 600 MG, QD
     Route: 048
     Dates: start: 20160708
  49. POTASSIUM [Concomitant]
     Active Substance: POTASSIUM
     Indication: ANXIETY
     Dosage: 5 MG, QD
     Route: 048
     Dates: start: 20160725
  50. POTASSIUM [Concomitant]
     Active Substance: POTASSIUM
     Indication: INFLAMMATION
     Dosage: 150 MG, QD
     Route: 048
     Dates: start: 20160730
  51. POTASSIUM [Concomitant]
     Active Substance: POTASSIUM
     Dosage: UNK
     Route: 065
     Dates: start: 20110406
  52. PATANOL [Concomitant]
     Active Substance: OLOPATADINE HYDROCHLORIDE
     Indication: EYE PRURITUS
     Dates: start: 2015
  53. PREMARIN [Concomitant]
     Active Substance: ESTROGENS, CONJUGATED
     Indication: MENOPAUSE
     Route: 048
     Dates: start: 2016
  54. KETOTIFEN [Concomitant]
     Active Substance: KETOTIFEN
     Indication: EYE PRURITUS
     Dates: start: 2015
  55. ZEASORB AF [Concomitant]
     Active Substance: MICONAZOLE NITRATE
     Indication: ANTIFUNGAL TREATMENT
     Dates: start: 2011
  56. SINGULAIR [Concomitant]
     Active Substance: MONTELUKAST SODIUM
     Route: 048
  57. PREVACID [Suspect]
     Active Substance: LANSOPRAZOLE
     Dosage: 15 MG, QD
     Route: 065
     Dates: start: 2013, end: 2014
  58. DEXILANT [Suspect]
     Active Substance: DEXLANSOPRAZOLE
     Indication: GASTROOESOPHAGEAL REFLUX DISEASE
     Route: 065
     Dates: start: 2013
  59. ESOMEPRAZOLE [Suspect]
     Active Substance: ESOMEPRAZOLE
     Indication: PRODUCT USED FOR UNKNOWN INDICATION
     Dosage: UNK
     Route: 048
  60. NAFTIN [Concomitant]
     Active Substance: NAFTIFINE HYDROCHLORIDE
     Indication: ANTIFUNGAL TREATMENT
     Dates: start: 2010

REACTIONS (3)
  - Acute kidney injury [Unknown]
  - Renal failure [Unknown]
  - Chronic kidney disease [Unknown]

NARRATIVE: CASE EVENT DATE: 20170316
